FAERS Safety Report 26191344 (Version 1)
Quarter: 2025Q4

REPORT INFORMATION
  Report Type: Spontaneous
  Country: CN (occurrence: CN)
  Receive Date: 20251223
  Receipt Date: 20251223
  Transmission Date: 20260118
  Serious: Yes (Hospitalization)
  Sender: BAYER HEALTHCARE PHARMACEUTICALS INC.
  Company Number: CN-BAYER-2025A167351

PATIENT
  Age: 77 Year
  Sex: Female
  Weight: 60 kg

DRUGS (4)
  1. GLUCOBAY [Interacting]
     Active Substance: ACARBOSE
     Indication: Diabetes mellitus inadequate control
     Dosage: 50 MG, TID
     Route: 048
     Dates: start: 20250601, end: 20251104
  2. HUMULIN R [Interacting]
     Active Substance: INSULIN HUMAN
     Indication: Diabetes mellitus inadequate control
     Dosage: 26 U, OM
     Route: 058
     Dates: start: 20250601, end: 20251104
  3. HUMULIN R [Interacting]
     Active Substance: INSULIN HUMAN
     Indication: Diabetes mellitus inadequate control
     Dosage: 20 U, HS
     Route: 058
     Dates: start: 20250601, end: 20251104
  4. DORZAGLIATIN [Interacting]
     Active Substance: DORZAGLIATIN
     Indication: Diabetes mellitus inadequate control
     Dosage: 0.5 DF, BID
     Route: 048
     Dates: start: 20250601, end: 20251104

REACTIONS (2)
  - Hypoglycaemia [Recovering/Resolving]
  - Dizziness [Recovering/Resolving]

NARRATIVE: CASE EVENT DATE: 20250101
